FAERS Safety Report 6607470-9 (Version None)
Quarter: 2010Q1

REPORT INFORMATION
  Report Type: 
  Country: None (occurrence: None)
  Receive Date: 20100301
  Receipt Date: 20100222
  Transmission Date: 20100710
  Serious: Yes (Hospitalization)
  Sender: FDA-Public Use
  Company Number: TW-BAYER-200934711GPV

PATIENT
  Age: 68 Year
  Sex: Male
  Weight: 60 kg

DRUGS (11)
  1. SORAFENIB [Suspect]
     Indication: HEPATIC NEOPLASM MALIGNANT
     Dosage: TOTAL DAILY DOSE: 400 MG
     Route: 065
     Dates: start: 20090702, end: 20090919
  2. ERISPAN [Concomitant]
     Indication: PROPHYLAXIS
     Dosage: TOTAL DAILY DOSE: 0.75 MG
  3. SOLANTIN (DIPYRIDAMOLE) [Concomitant]
     Indication: CORONARY ARTERY DISEASE
     Dosage: TOTAL DAILY DOSE: 75 MG
  4. BLOPRESS [Concomitant]
     Indication: HYPERTENSION
  5. STILNOX [Concomitant]
     Indication: INSOMNIA
  6. PROPHYLLINE [Concomitant]
     Indication: PROPHYLAXIS AGAINST BRONCHOSPASM
     Dosage: TOTAL DAILY DOSE: 300 MG
  7. DILTIAZEM HYDROCHLORIDE [Concomitant]
     Indication: HYPERTENSION
     Dosage: TOTAL DAILY DOSE: 90 MG
  8. XATRAL XL [Concomitant]
     Indication: BENIGN PROSTATIC HYPERPLASIA
  9. UREA [Concomitant]
     Indication: PROPHYLAXIS
     Dates: start: 20090730, end: 20090920
  10. DEXALTIN [Concomitant]
     Indication: MOUTH ULCERATION
     Dates: start: 20090902, end: 20090923
  11. MYCOSTATIN [Concomitant]
     Indication: ORAL CANDIDIASIS
     Dosage: TOTAL DAILY DOSE: 6 ML
     Dates: start: 20090902, end: 20090909

REACTIONS (1)
  - LIVER ABSCESS [None]
